FAERS Safety Report 4908214-9 (Version None)
Quarter: 2006Q1

REPORT INFORMATION
  Report Type: 
  Country: None (occurrence: None)
  Receive Date: 20060210
  Receipt Date: 20050912
  Transmission Date: 20060701
  Serious: Yes (Hospitalization)
  Sender: FDA-Public Use
  Company Number: US-MERCK-0510USA07352

PATIENT
  Age: 75 Year
  Sex: Female
  Weight: 63 kg

DRUGS (8)
  1. VIOXX [Suspect]
     Indication: RHEUMATOID ARTHRITIS
     Route: 048
     Dates: start: 20000101, end: 20040101
  2. ATENOLOL [Concomitant]
     Route: 065
  3. ZYPREXA [Concomitant]
     Route: 065
  4. AMBIEN [Concomitant]
     Route: 065
  5. PROZAC [Concomitant]
     Route: 065
  6. ALTACE [Concomitant]
     Route: 065
  7. PREVACID [Concomitant]
     Route: 065
  8. ZESTRIL [Concomitant]
     Route: 065

REACTIONS (1)
  - CEREBROVASCULAR ACCIDENT [None]
